FAERS Safety Report 25140994 (Version 1)
Quarter: 2025Q1

REPORT INFORMATION
  Report Type: Report from Study
  Country: JP (occurrence: JP)
  Receive Date: 20250331
  Receipt Date: 20250331
  Transmission Date: 20250409
  Serious: Yes (Death)
  Sender: SHIONOGI
  Company Number: JP-shionogi-202500003390

PATIENT
  Age: 59 Year
  Sex: Female

DRUGS (2)
  1. CEFIDEROCOL [Suspect]
     Active Substance: CEFIDEROCOL
     Indication: Product used for unknown indication
     Route: 065
     Dates: start: 20250116
  2. CEFIDEROCOL [Suspect]
     Active Substance: CEFIDEROCOL
     Route: 065

REACTIONS (2)
  - Gastrointestinal necrosis [Fatal]
  - Condition aggravated [Unknown]
